FAERS Safety Report 4396628-8 (Version None)
Quarter: 2004Q3

REPORT INFORMATION
  Report Type: 
  Country: None (occurrence: None)
  Receive Date: 20040713
  Receipt Date: 20040713
  Transmission Date: 20050211
  Serious: Yes (Hospitalization)
  Sender: FDA-Public Use
  Company Number: None

PATIENT
  Age: 54 Year
  Sex: Male
  Weight: 94 kg

DRUGS (1)
  1. VANCOMYCIN [Suspect]
     Indication: BACTERIAL INFECTION
     Dosage: 1250 MG Q24 H INTRAVENOUS
     Route: 042
     Dates: start: 20040611, end: 20040614

REACTIONS (3)
  - KLEBSIELLA INFECTION [None]
  - RASH [None]
  - RED MAN SYNDROME [None]
